FAERS Safety Report 16130881 (Version 2)
Quarter: 2019Q2

REPORT INFORMATION
  Report Type: Report from Study
  Country: US (occurrence: US)
  Receive Date: 20190328
  Receipt Date: 20190402
  Transmission Date: 20190711
  Serious: Yes (Death)
  Sender: FDA-Public Use
  Company Number: US-GILEAD-2019-0399378

PATIENT
  Age: 49 Year
  Sex: Female

DRUGS (4)
  1. ADCIRCA [Concomitant]
     Active Substance: TADALAFIL
  2. REMODULIN [Suspect]
     Active Substance: TREPROSTINIL
     Indication: PRODUCT USED FOR UNKNOWN INDICATION
     Dosage: 22.5 UG/KG, Q1MINUTE
     Route: 065
     Dates: start: 20181011, end: 20190327
  3. REMODULIN [Suspect]
     Active Substance: TREPROSTINIL
     Dosage: 16 MG
     Route: 058
  4. AMBRISENTAN [Suspect]
     Active Substance: AMBRISENTAN
     Indication: PULMONARY HYPERTENSION
     Dosage: 10 MG, QD
     Route: 048
     Dates: start: 20141202

REACTIONS (1)
  - Hypoxia [Fatal]
